FAERS Safety Report 7714549-7 (Version None)
Quarter: 2011Q3

REPORT INFORMATION
  Report Type: 
  Country: None (occurrence: None)
  Receive Date: 20110804
  Receipt Date: 20110527
  Transmission Date: 20111222
  Serious: No
  Sender: FDA-Public Use
  Company Number: 2011-07555

PATIENT
  Age: 61 Year
  Sex: Male
  Weight: 80.7 kg

DRUGS (2)
  1. RAPAFLO [Suspect]
     Indication: PROSTATITIS
     Dosage: 8 MG, DAILY, ORAL ; 8 MG, DAILY, ORAL
     Route: 048
     Dates: start: 20110517, end: 20110523
  2. RAPAFLO [Suspect]
     Indication: PROSTATITIS
     Dosage: 8 MG, DAILY, ORAL ; 8 MG, DAILY, ORAL
     Route: 048
     Dates: start: 20110524

REACTIONS (3)
  - SOMNOLENCE [None]
  - ERECTION INCREASED [None]
  - RETROGRADE EJACULATION [None]
